FAERS Safety Report 9613707 (Version 3)
Quarter: 2013Q4

REPORT INFORMATION
  Report Type: Report from Study
  Country: AU (occurrence: AU)
  Receive Date: 20131010
  Receipt Date: 20131031
  Transmission Date: 20140711
  Serious: Yes (Other)
  Sender: FDA-Public Use
  Company Number: AU-ABBVIE-13P-008-1153384-00

PATIENT
  Age: 24 Year
  Sex: Female
  Weight: 65 kg

DRUGS (11)
  1. HUMIRA [Suspect]
     Indication: CROHN^S DISEASE
     Route: 058
     Dates: start: 20091016, end: 20091016
  2. HUMIRA [Suspect]
     Route: 058
  3. HUMIRA [Suspect]
     Route: 058
     Dates: end: 20120618
  4. ESTELLE [Concomitant]
     Indication: CONTRACEPTION
     Route: 048
     Dates: start: 200710
  5. INFLUENZA VACCINE [Concomitant]
     Indication: PROPHYLAXIS
     Dosage: ONE DOSE YEARLY
     Dates: start: 200909
  6. ZIRTEC [Concomitant]
     Indication: SEASONAL ALLERGY
     Dates: start: 2009
  7. FLIXOTIDE [Concomitant]
     Indication: ASTHMA
     Dates: start: 2011
  8. BUDESONIDE [Concomitant]
     Indication: CROHN^S DISEASE
     Dosage: 9 MG DECREASING DOSE
     Dates: start: 200908, end: 200912
  9. BUDESONIDE [Concomitant]
  10. INFLIXIMAB [Concomitant]
     Indication: CROHN^S DISEASE
     Route: 042
     Dates: start: 20120707
  11. FLAGYL [Concomitant]
     Indication: BACTERIAL INFECTION
     Dates: start: 20130226, end: 20130304

REACTIONS (1)
  - Renal abscess [Not Recovered/Not Resolved]
